FAERS Safety Report 19299130 (Version 1)
Quarter: 2021Q2

REPORT INFORMATION
  Report Type: Spontaneous
  Country: US (occurrence: US)
  Receive Date: 20210524
  Receipt Date: 20210524
  Transmission Date: 20210717
  Serious: Yes (Life-Threatening, Hospitalization)
  Sender: FDA-Public Use
  Company Number: None

PATIENT
  Age: 66 Year
  Sex: Female

DRUGS (1)
  1. COPAXONE [Suspect]
     Active Substance: GLATIRAMER ACETATE
     Indication: MULTIPLE SCLEROSIS
     Route: 058
     Dates: start: 2004, end: 202003

REACTIONS (7)
  - Road traffic accident [None]
  - Gait disturbance [None]
  - Joint injury [None]
  - Lymphoma [None]
  - Swelling [None]
  - Lung neoplasm malignant [None]
  - Post procedural complication [None]

NARRATIVE: CASE EVENT DATE: 20210320
